FAERS Safety Report 25730556 (Version 1)
Quarter: 2025Q3

REPORT INFORMATION
  Report Type: Spontaneous
  Country: EU (occurrence: EU)
  Receive Date: 20250827
  Receipt Date: 20250827
  Transmission Date: 20251021
  Serious: Yes (Other)
  Sender: CHEPLAPHARM
  Company Number: None

PATIENT
  Age: 19 Year
  Sex: Male

DRUGS (9)
  1. CLONAZEPAM [Suspect]
     Active Substance: CLONAZEPAM
  2. CANNABIS SATIVA SUBSP. INDICA TOP [Suspect]
     Active Substance: CANNABIS SATIVA SUBSP. INDICA TOP
  3. TRAMADOL HYDROCHLORIDE [Suspect]
     Active Substance: TRAMADOL HYDROCHLORIDE
  4. COCAETHYLENE [Suspect]
     Active Substance: COCAETHYLENE
  5. COCAINE [Suspect]
     Active Substance: COCAINE
  6. COCAINE [Suspect]
     Active Substance: COCAINE
  7. DIAZEPAM [Suspect]
     Active Substance: DIAZEPAM
  8. HEROIN [Suspect]
     Active Substance: DIAMORPHINE
     Route: 042
  9. PREGABALIN [Suspect]
     Active Substance: PREGABALIN

REACTIONS (7)
  - Tachycardia [Recovered/Resolved]
  - Hypertension [Recovered/Resolved]
  - Agitation [Recovered/Resolved]
  - Confusional state [Recovered/Resolved]
  - Hyperhidrosis [Recovered/Resolved]
  - Substance use disorder [Unknown]
  - Drug use disorder [Unknown]

NARRATIVE: CASE EVENT DATE: 20250505
